FAERS Safety Report 5589477-6 (Version None)
Quarter: 2008Q1

REPORT INFORMATION
  Report Type: 
  Country: None (occurrence: None)
  Receive Date: 20080109
  Receipt Date: 20071221
  Transmission Date: 20080703
  Serious: Yes (Death)
  Sender: FDA-Public Use
  Company Number: S08-CAN-00053-01

PATIENT
  Age: 19 Year
  Sex: Female

DRUGS (3)
  1. CELEXA [Suspect]
  2. AMITRIPTYLINE HCL [Suspect]
  3. DIAZEPAM [Suspect]

REACTIONS (10)
  - AFFECT LABILITY [None]
  - AGGRESSION [None]
  - COMPLETED SUICIDE [None]
  - DEPRESSED LEVEL OF CONSCIOUSNESS [None]
  - DEPRESSION [None]
  - GAIT DISTURBANCE [None]
  - INJURY [None]
  - IRRITABILITY [None]
  - PERSONALITY DISORDER [None]
  - PSYCHOTIC DISORDER [None]
